FAERS Safety Report 6533336-9 (Version None)
Quarter: 2010Q1

REPORT INFORMATION
  Report Type: 
  Country: None (occurrence: None)
  Receive Date: 20100111
  Receipt Date: 20100106
  Transmission Date: 20100710
  Serious: Yes (Congenital Anomaly, Other)
  Sender: FDA-Public Use
  Company Number: B0502573A

PATIENT
  Sex: Male

DRUGS (2)
  1. COMBIVIR [Suspect]
     Indication: HIV INFECTION
  2. KALETRA [Suspect]
     Indication: HIV INFECTION
     Dosage: 10MG PER DAY

REACTIONS (4)
  - BRAIN NEOPLASM [None]
  - CONGENITAL CHOROID PLEXUS CYST [None]
  - KIDNEY MALFORMATION [None]
  - PREMATURE BABY [None]
